FAERS Safety Report 7450142-1 (Version None)
Quarter: 2011Q2

REPORT INFORMATION
  Report Type: 
  Country: None (occurrence: None)
  Receive Date: 20110428
  Receipt Date: 20110428
  Transmission Date: 20111010
  Serious: Yes (Hospitalization)
  Sender: FDA-Public Use
  Company Number: None

PATIENT
  Sex: Male

DRUGS (1)
  1. IMURAN [Suspect]
     Dosage: 50MG 1 TAB DAILY PO
     Route: 048
     Dates: start: 20101201, end: 20110101

REACTIONS (5)
  - CHILLS [None]
  - PYREXIA [None]
  - PARALYSIS [None]
  - FEELING COLD [None]
  - LUNG DISORDER [None]
